FAERS Safety Report 5288833-3 (Version None)
Quarter: 2007Q2

REPORT INFORMATION
  Report Type: 
  Country: None (occurrence: None)
  Receive Date: 20070405
  Receipt Date: 20070329
  Transmission Date: 20071010
  Serious: Yes (Other)
  Sender: FDA-Public Use
  Company Number: JP-MERCK-0703USA01947

PATIENT
  Age: 71 Year
  Sex: Female
  Weight: 51 kg

DRUGS (7)
  1. HYZAAR [Suspect]
     Indication: HYPERTENSION
     Route: 048
     Dates: start: 20070118, end: 20070120
  2. ONEALFA [Concomitant]
     Indication: OSTEOPOROSIS
     Route: 048
     Dates: start: 20040513
  3. MUCOSTA [Concomitant]
     Indication: ULCER
     Route: 048
     Dates: start: 20040406
  4. MUCOSTA [Concomitant]
     Indication: GASTRITIS
     Route: 048
     Dates: start: 20040406
  5. MARZULENE-S [Concomitant]
     Indication: ULCER
     Route: 048
     Dates: start: 20040406
  6. MARZULENE-S [Concomitant]
     Indication: GASTRITIS
     Route: 048
     Dates: start: 20040406
  7. JUVELA N [Concomitant]
     Indication: ARTERIOSCLEROSIS
     Route: 048
     Dates: start: 20060623

REACTIONS (3)
  - ASTHENIA [None]
  - HEADACHE [None]
  - MALAISE [None]
